FAERS Safety Report 10962707 (Version 1)
Quarter: 2015Q1

REPORT INFORMATION
  Report Type: Spontaneous
  Country: JP (occurrence: JP)
  Receive Date: 20150327
  Receipt Date: 20150327
  Transmission Date: 20150721
  Serious: Yes (Life-Threatening, Hospitalization)
  Sender: FDA-Public Use
  Company Number: JP-ASTRAZENECA-2015SE11166

PATIENT
  Age: 79 Year
  Sex: Male

DRUGS (5)
  1. TAKEPRON [Concomitant]
     Active Substance: LANSOPRAZOLE
     Indication: GASTRITIS PROPHYLAXIS
     Route: 048
     Dates: start: 20150128, end: 20150130
  2. MEROPEN [Suspect]
     Active Substance: MEROPENEM
     Indication: LUNG INFECTION
     Route: 042
     Dates: start: 20150126, end: 20150129
  3. TEICOPLANIN [Concomitant]
     Active Substance: TEICOPLANIN
     Indication: LUNG INFECTION
     Dates: start: 20150117
  4. CELECOX [Concomitant]
     Active Substance: CELECOXIB
     Indication: PYREXIA
     Route: 048
     Dates: start: 20150128, end: 20150130
  5. NEXAVAR [Concomitant]
     Active Substance: SORAFENIB
     Indication: HEPATOCELLULAR CARCINOMA

REACTIONS (2)
  - Seizure [Recovered/Resolved]
  - Respiratory depression [Unknown]

NARRATIVE: CASE EVENT DATE: 20150129
